FAERS Safety Report 17258262 (Version 1)
Quarter: 2019Q4

REPORT INFORMATION
  Report Type: Spontaneous
  Country: US (occurrence: US)
  Receive Date: 20191217
  Receipt Date: 20191217
  Transmission Date: 20200122
  Serious: No
  Sender: FDA-Public Use
  Company Number: None

PATIENT

DRUGS (1)
  1. AFINITOR [Suspect]
     Active Substance: EVEROLIMUS
     Indication: CHORDOMA
     Route: 048
     Dates: start: 201912

REACTIONS (1)
  - Off label use [None]

NARRATIVE: CASE EVENT DATE: 20191217
